FAERS Safety Report 9953426 (Version 1)
Quarter: 2014Q1

REPORT INFORMATION
  Report Type: Report from Study
  Country: US (occurrence: US)
  Receive Date: 20140304
  Receipt Date: 20140304
  Transmission Date: 20141002
  Serious: No
  Sender: FDA-Public Use
  Company Number: US-ABBVIE-13P-163-1074733-00

PATIENT
  Age: 42 Year
  Sex: Female

DRUGS (3)
  1. HUMIRA [Suspect]
     Indication: CROHN^S DISEASE
     Dates: start: 20130129
  2. PROVENTIL [Concomitant]
     Indication: ASTHMA
     Route: 055
  3. LO/ORVAL [Concomitant]
     Indication: CONTRACEPTION
     Dosage: DAILY

REACTIONS (1)
  - Injection site erythema [Recovered/Resolved]
